FAERS Safety Report 12463991 (Version 1)
Quarter: 2016Q2

REPORT INFORMATION
  Report Type: Spontaneous
  Country: US (occurrence: None)
  Receive Date: 20160613
  Receipt Date: 20160613
  Transmission Date: 20160815
  Serious: No
  Sender: FDA-Public Use
  Company Number: None

PATIENT
  Age: 63 Year
  Sex: Male
  Weight: 85.28 kg

DRUGS (4)
  1. GLUCOSAMINE [Concomitant]
     Active Substance: GLUCOSAMINE
  2. AZITHROMYCIN TABLETS USP, 250 MG TEVA [Suspect]
     Active Substance: AZITHROMYCIN ANHYDROUS
     Indication: ENDODONTIC PROCEDURE
     Dosage: 4 TABLET(S) ONCE A DAY TAKEN BY MOUTH
     Route: 048
     Dates: start: 20160608, end: 20160610
  3. CHONDROITIN [Concomitant]
     Active Substance: CHONDROITIN
  4. CALCIUM CITRATE W/ VITAMIN D [Concomitant]

REACTIONS (3)
  - Penis disorder [None]
  - Dysuria [None]
  - Paraesthesia [None]

NARRATIVE: CASE EVENT DATE: 20160610
